FAERS Safety Report 16555879 (Version 1)
Quarter: 2019Q3

REPORT INFORMATION
  Report Type: Report from Study
  Country: DE (occurrence: DE)
  Receive Date: 20190710
  Receipt Date: 20190710
  Transmission Date: 20191004
  Serious: Yes (Other)
  Sender: FDA-Public Use
  Company Number: DE-MYLANLABS-2019M1062770

PATIENT
  Sex: Female

DRUGS (19)
  1. METHOTREXATE. [Suspect]
     Active Substance: METHOTREXATE
     Indication: PRODUCT USED FOR UNKNOWN INDICATION
     Dosage: 20MG, UNK
     Route: 065
     Dates: start: 20100223
  2. METHOTREXATE. [Suspect]
     Active Substance: METHOTREXATE
     Dosage: 20MG, UNK
     Route: 065
     Dates: start: 20150512
  3. METHOTREXATE. [Suspect]
     Active Substance: METHOTREXATE
     Dosage: 20MG, UNK
     Route: 065
     Dates: start: 20140304
  4. METHOTREXATE. [Suspect]
     Active Substance: METHOTREXATE
     Dosage: 20MG, UNK
     Route: 065
     Dates: start: 20100823
  5. METHOTREXATE. [Suspect]
     Active Substance: METHOTREXATE
     Dosage: 20MG, UNK
     Route: 065
     Dates: start: 20120808
  6. METHOTREXATE. [Suspect]
     Active Substance: METHOTREXATE
     Dosage: 20MG, UNK
     Route: 065
     Dates: start: 20100527
  7. METHOTREXATE. [Suspect]
     Active Substance: METHOTREXATE
     Dosage: 17.5MG, UNK
     Route: 065
     Dates: start: 20180124
  8. MABTHERA [Suspect]
     Active Substance: RITUXIMAB
     Dosage: 1000 MG, UNK
     Route: 065
     Dates: start: 201002
  9. METHOTREXATE. [Suspect]
     Active Substance: METHOTREXATE
     Dosage: 20MG, UNK
     Route: 065
     Dates: start: 20120207
  10. METHOTREXATE. [Suspect]
     Active Substance: METHOTREXATE
     Dosage: 20MG, UNK
     Route: 065
     Dates: start: 20161006
  11. METHOTREXATE. [Suspect]
     Active Substance: METHOTREXATE
     Dosage: 20MG, UNK
     Route: 065
     Dates: start: 20170911
  12. MABTHERA [Suspect]
     Active Substance: RITUXIMAB
     Dosage: 1000 MG, UNK
     Route: 065
     Dates: start: 201103
  13. METHOTREXATE. [Suspect]
     Active Substance: METHOTREXATE
     Dosage: 22.5 MG, UNK
     Route: 065
     Dates: start: 20131210
  14. MABTHERA [Suspect]
     Active Substance: RITUXIMAB
     Dosage: 1000 MG, UNK
     Route: 065
     Dates: start: 201109
  15. METHOTREXATE. [Suspect]
     Active Substance: METHOTREXATE
     Dosage: 20MG, UNK
     Route: 065
     Dates: start: 20140827
  16. METHOTREXATE. [Suspect]
     Active Substance: METHOTREXATE
     Dosage: 20MG, UNK
     Route: 065
     Dates: start: 20110217
  17. MABTHERA [Suspect]
     Active Substance: RITUXIMAB
     Indication: PRODUCT USED FOR UNKNOWN INDICATION
     Dosage: 1000 MG, UNK
     Route: 065
     Dates: start: 201008
  18. MABTHERA [Suspect]
     Active Substance: RITUXIMAB
     Dosage: 1000 MG, UNK
     Route: 065
     Dates: start: 201005
  19. METHOTREXATE. [Suspect]
     Active Substance: METHOTREXATE
     Dosage: 20MG, UNK
     Route: 065
     Dates: start: 20130304

REACTIONS (1)
  - Cerebral infarction [Recovered/Resolved]

NARRATIVE: CASE EVENT DATE: 20170928
